FAERS Safety Report 15034142 (Version 3)
Quarter: 2018Q4

REPORT INFORMATION
  Report Type: Spontaneous
  Country: GB (occurrence: GB)
  Receive Date: 20180620
  Receipt Date: 20181106
  Transmission Date: 20190204
  Serious: Yes (Death, Hospitalization)
  Sender: FDA-Public Use
  Company Number: GB-CIPLA LTD.-2018GB19108

PATIENT

DRUGS (3)
  1. DIHYDROCODEINE [Concomitant]
     Active Substance: DIHYDROCODEINE
     Indication: BACK PAIN
     Dosage: 120 MG, PER DAY, TABLET
     Route: 048
  2. ESCITALOPRAM [Suspect]
     Active Substance: ESCITALOPRAM OXALATE
     Indication: DEPRESSION
     Dosage: 20 MG, PER DAY
     Route: 048
     Dates: end: 20180519
  3. ACETYLSALICYLIC ACID [Suspect]
     Active Substance: ASPIRIN
     Indication: PRODUCT USED FOR UNKNOWN INDICATION
     Dosage: 75 MG, PER DAY, TABLET
     Route: 048
     Dates: end: 20180519

REACTIONS (2)
  - Gastrointestinal pain [Unknown]
  - Gastric ulcer haemorrhage [Fatal]

NARRATIVE: CASE EVENT DATE: 20180519
